FAERS Safety Report 4644829-3 (Version None)
Quarter: 2005Q2

REPORT INFORMATION
  Report Type: 
  Country: None (occurrence: None)
  Receive Date: 20050426
  Receipt Date: 20050104
  Transmission Date: 20051028
  Serious: Yes (Hospitalization)
  Sender: FDA-Public Use
  Company Number: US-MERCK-0501USA00357

PATIENT
  Age: 64 Year
  Sex: Female
  Weight: 86 kg

DRUGS (5)
  1. VIOXX [Suspect]
     Indication: ARTHRITIS
     Route: 048
     Dates: start: 19980101, end: 20020101
  2. ASPIRIN [Concomitant]
     Route: 065
     Dates: start: 19970101
  3. BEXTRA [Concomitant]
     Route: 065
     Dates: start: 19970101
  4. ZESTRIL [Concomitant]
     Route: 065
     Dates: start: 19970101
  5. TYLENOL (CAPLET) [Concomitant]
     Route: 065
     Dates: start: 19970101

REACTIONS (3)
  - DIABETES MELLITUS [None]
  - EAR PAIN [None]
  - MYOCARDIAL INFARCTION [None]
